FAERS Safety Report 24538231 (Version 1)
Quarter: 2024Q4

REPORT INFORMATION
  Report Type: Other
  Country: ES (occurrence: ES)
  Receive Date: 20241023
  Receipt Date: 20241023
  Transmission Date: 20250115
  Serious: No
  Sender: TOLMAR
  Company Number: ES-RECORDATI-2024007751

PATIENT

DRUGS (2)
  1. ELIGARD [Suspect]
     Active Substance: LEUPROLIDE ACETATE
     Indication: Product used for unknown indication
     Dosage: UNK
     Route: 058
  2. ELIGARD [Suspect]
     Active Substance: LEUPROLIDE ACETATE
     Indication: Product used for unknown indication
     Dosage: UNK

REACTIONS (5)
  - Injection site cyst [Unknown]
  - Breast pain [Unknown]
  - Injection site pain [Unknown]
  - Hot flush [Unknown]
  - Gynaecomastia [Unknown]
